FAERS Safety Report 23026194 (Version 2)
Quarter: 2023Q4

REPORT INFORMATION
  Report Type: Report from Study
  Country: US (occurrence: US)
  Receive Date: 20231004
  Receipt Date: 20231215
  Transmission Date: 20240109
  Serious: Yes (Other)
  Sender: FDA-Public Use
  Company Number: US-002147023-NVSC2023US210231

PATIENT
  Age: 63 Year
  Sex: Male

DRUGS (2)
  1. ENTRESTO [Suspect]
     Active Substance: SACUBITRIL\VALSARTAN
     Indication: Cardiac failure
     Dosage: 1 DOSAGE FORM, BID (24/26 MG)
     Route: 048
     Dates: start: 20230802, end: 20231205
  2. POTASSIUM [Suspect]
     Active Substance: POTASSIUM
     Indication: Product used for unknown indication
     Dosage: UNK
     Route: 065

REACTIONS (9)
  - Atrial fibrillation [Not Recovered/Not Resolved]
  - Aortic aneurysm [Unknown]
  - Hypotension [Unknown]
  - Heart rate increased [Unknown]
  - Dizziness [Unknown]
  - Haemoglobin decreased [Recovering/Resolving]
  - Arteriosclerosis coronary artery [Unknown]
  - Coronary artery disease [Recovered/Resolved]
  - Dehydration [Recovering/Resolving]

NARRATIVE: CASE EVENT DATE: 20230801
